FAERS Safety Report 19589679 (Version 1)
Quarter: 2021Q3

REPORT INFORMATION
  Report Type: Spontaneous
  Country: US (occurrence: US)
  Receive Date: 20210721
  Receipt Date: 20210721
  Transmission Date: 20211014
  Serious: Yes (Other)
  Sender: FDA-Public Use
  Company Number: US-ASTRAZENECA-2021A517054

PATIENT
  Sex: Male
  Weight: 142 kg

DRUGS (2)
  1. BYDUREON BCISE [Suspect]
     Active Substance: EXENATIDE
     Dosage: 2.0MG UNKNOWN
     Route: 065
  2. BYDUREON [Concomitant]
     Active Substance: EXENATIDE

REACTIONS (3)
  - Device malfunction [Unknown]
  - Glycosylated haemoglobin increased [Unknown]
  - Incorrect dose administered by device [Unknown]
